FAERS Safety Report 8920324 (Version 2)
Quarter: 2012Q4

REPORT INFORMATION
  Report Type: 
  Country: US (occurrence: US)
  Receive Date: 20121122
  Receipt Date: 20121227
  Transmission Date: 20130627
  Serious: No
  Sender: FDA-Public Use
  Company Number: US-JNJFOC-20121105584

PATIENT
  Sex: Male

DRUGS (3)
  1. DURAGESIC [Suspect]
     Indication: PRODUCT USED FOR UNKNOWN INDICATION
     Dosage: two 100 ug/hr patches every 48 hours
     Route: 062
  2. DURAGESIC [Suspect]
     Indication: PRODUCT USED FOR UNKNOWN INDICATION
     Dosage: two 100 ug/hr patches every 48 hours
     Route: 062
  3. UNSPECIFIED FENTANYL TRANSDERMAL SYSTEM [Suspect]
     Indication: PRODUCT USED FOR UNKNOWN INDICATION
     Dosage: two 100 ug/hr patches every 48 hours
     Route: 062

REACTIONS (4)
  - Wrong technique in drug usage process [Not Recovered/Not Resolved]
  - Product quality issue [Unknown]
  - Dermatitis contact [Not Recovered/Not Resolved]
  - Disability [Not Recovered/Not Resolved]
